FAERS Safety Report 10304010 (Version 2)
Quarter: 2015Q3

REPORT INFORMATION
  Report Type: Spontaneous
  Country: US (occurrence: US)
  Receive Date: 20140714
  Receipt Date: 20150817
  Transmission Date: 20151125
  Serious: No
  Sender: FDA-Public Use
  Company Number: US-GILEAD-2013-0085725

PATIENT
  Age: 50 Year
  Sex: Female

DRUGS (1)
  1. LETAIRIS [Suspect]
     Active Substance: AMBRISENTAN
     Indication: PRODUCT USED FOR UNKNOWN INDICATION
     Dosage: 10 MG, QD
     Dates: start: 20100818

REACTIONS (9)
  - Syncope [Recovered/Resolved]
  - Vomiting [Unknown]
  - Oedema peripheral [Unknown]
  - Oedema [Unknown]
  - Dyspnoea [Unknown]
  - Dizziness [Unknown]
  - Chest discomfort [Unknown]
  - Hyperhidrosis [Unknown]
  - Rash [Unknown]

NARRATIVE: CASE EVENT DATE: 201309
